FAERS Safety Report 8246763-9 (Version None)
Quarter: 2012Q1

REPORT INFORMATION
  Report Type: 
  Country: None (occurrence: None)
  Receive Date: 20120330
  Receipt Date: 20120323
  Transmission Date: 20120608
  Serious: Yes (Hospitalization, Other)
  Sender: FDA-Public Use
  Company Number: JP-PFIZER INC-2012044121

PATIENT
  Age: 68 Year
  Sex: Female

DRUGS (6)
  1. RHEUMATREX [Concomitant]
     Dosage: 8 MG, WEEKLY
     Route: 048
     Dates: start: 20110303, end: 20111123
  2. RIMATIL [Concomitant]
     Dosage: 50 MG, 2X/DAY
     Route: 048
     Dates: start: 20110303, end: 20111124
  3. PREDNISOLONE [Concomitant]
     Dosage: 1 MG, 2X/DAY
     Dates: start: 20110303
  4. FOLIC ACID [Concomitant]
     Dosage: UNK
     Route: 048
     Dates: start: 20110303, end: 20111123
  5. CELEBREX [Concomitant]
     Dosage: 200 MG, 2X/DAY
     Dates: start: 20110309
  6. AZULFIDINE [Suspect]
     Indication: RHEUMATOID ARTHRITIS
     Dosage: 500 MG, 2X/DAY
     Route: 048
     Dates: start: 20111124, end: 20111207

REACTIONS (7)
  - MALAISE [None]
  - NASOPHARYNGITIS [None]
  - DRUG ERUPTION [None]
  - PRURITUS [None]
  - HEPATIC FUNCTION ABNORMAL [None]
  - ERYTHEMA [None]
  - PAIN IN EXTREMITY [None]
